FAERS Safety Report 21204132 (Version 1)
Quarter: 2022Q3

REPORT INFORMATION
  Report Type: Spontaneous
  Country: ID (occurrence: ID)
  Receive Date: 20220812
  Receipt Date: 20220812
  Transmission Date: 20221027
  Serious: Yes (Other)
  Sender: FDA-Public Use
  Company Number: ID-STRIDES ARCOLAB LIMITED-2022SP010217

PATIENT
  Age: 60 Year
  Sex: Male

DRUGS (1)
  1. METHOTREXATE [Suspect]
     Active Substance: METHOTREXATE
     Indication: Pustular psoriasis
     Dosage: UNK,LATER, THERAPY WAS RESTARTED.
     Route: 065
     Dates: start: 2018

REACTIONS (2)
  - Withdrawal syndrome [Recovered/Resolved]
  - Pustular psoriasis [Recovered/Resolved]
